FAERS Safety Report 17699820 (Version 1)
Quarter: 2020Q2

REPORT INFORMATION
  Report Type: Report from Study
  Country: DE (occurrence: DE)
  Receive Date: 20200423
  Receipt Date: 20200423
  Transmission Date: 20200714
  Serious: Yes (Hospitalization, Other)
  Sender: FDA-Public Use
  Company Number: DE-JNJFOC-20200427801

PATIENT
  Sex: Female
  Weight: 42.6 kg

DRUGS (9)
  1. ESOMEPRAZOLE. [Concomitant]
     Active Substance: ESOMEPRAZOLE MAGNESIUM
     Indication: PRODUCT USED FOR UNKNOWN INDICATION
     Dosage: 20 MILLIGRAM, 1/DAY
     Route: 065
  2. BISOPROLOL [Concomitant]
     Active Substance: BISOPROLOL
     Indication: PRODUCT USED FOR UNKNOWN INDICATION
     Dosage: 5 MILLIGRAM, 1/DAY
     Route: 065
  3. TRAMADOL HYDROCHLORIDE. [Suspect]
     Active Substance: TRAMADOL HYDROCHLORIDE
     Indication: PRODUCT USED FOR UNKNOWN INDICATION
     Dosage: UNK
     Route: 065
  4. ASCORBIC ACID. [Suspect]
     Active Substance: ASCORBIC ACID
     Indication: PRODUCT USED FOR UNKNOWN INDICATION
     Route: 065
  5. OPIPRAMOL [Concomitant]
     Active Substance: OPIPRAMOL
     Indication: PRODUCT USED FOR UNKNOWN INDICATION
     Dosage: UNK
     Route: 065
  6. ADALIMUMAB [Suspect]
     Active Substance: ADALIMUMAB
     Indication: RHEUMATOID ARTHRITIS
     Dosage: 40 MILLIGRAM, EVERY 2 WEEKS
     Route: 058
     Dates: start: 20200329
  7. ADALIMUMAB [Suspect]
     Active Substance: ADALIMUMAB
     Indication: PRODUCT USED FOR UNKNOWN INDICATION
     Dosage: 40 MILLIGRAM, EVERY 2 WEEKS
     Route: 058
     Dates: start: 20170129, end: 202003
  8. CIPROFLOXACIN. [Concomitant]
     Active Substance: CIPROFLOXACIN
     Indication: DIARRHOEA
     Dosage: UNK
     Route: 065
     Dates: start: 201902, end: 201904
  9. ADALIMUMAB [Suspect]
     Active Substance: ADALIMUMAB
     Indication: PSORIATIC ARTHROPATHY
     Dosage: UNK
     Route: 058
     Dates: start: 2016

REACTIONS (51)
  - Large intestinal stenosis [Unknown]
  - Granular cell tumour [Recovered/Resolved]
  - Chronic gastritis [Unknown]
  - Ovarian cyst [Unknown]
  - Food intolerance [Unknown]
  - Blood elastase decreased [Unknown]
  - Blood potassium increased [Recovered/Resolved]
  - Activated partial thromboplastin time shortened [Unknown]
  - pH urine decreased [Unknown]
  - Gastric mucosa erythema [Unknown]
  - Mobility decreased [Not Recovered/Not Resolved]
  - Fibroma [Unknown]
  - Granular cell tumour [Unknown]
  - Urine ketone body present [Unknown]
  - Diarrhoea [Unknown]
  - Colitis microscopic [Not Recovered/Not Resolved]
  - Blood cholesterol increased [Unknown]
  - Drug intolerance [Unknown]
  - Uterine leiomyoma [Unknown]
  - Enterobiasis [Unknown]
  - Bladder disorder [Unknown]
  - Unevaluable event [Unknown]
  - Ectopic gastric mucosa [Unknown]
  - Abdominal pain [Unknown]
  - Haemoglobin increased [Unknown]
  - Blood triglycerides increased [Unknown]
  - Weight decreased [Unknown]
  - Aspartate aminotransferase increased [Unknown]
  - Tachycardia [Unknown]
  - Haematuria [Unknown]
  - Oesophageal neoplasm [Unknown]
  - Asthenia [Unknown]
  - Colitis microscopic [Not Recovered/Not Resolved]
  - Oesophageal papilloma [Unknown]
  - Red blood cell count decreased [Unknown]
  - Gastrointestinal tract mucosal pigmentation [Unknown]
  - Unevaluable event [Unknown]
  - Volvulus [Unknown]
  - Bladder diverticulum [Unknown]
  - Ureterocele [Unknown]
  - Diarrhoea [Unknown]
  - Colitis [Unknown]
  - Granular cell tumour [Unknown]
  - Haemoglobinuria [Unknown]
  - Oesophageal polyp [Unknown]
  - Acute oesophageal mucosal lesion [Unknown]
  - Abdominal pain [Recovered/Resolved]
  - Gastrooesophageal reflux disease [Unknown]
  - Red blood cell count increased [Unknown]
  - Blood urea decreased [Unknown]
  - Hepatic steatosis [Unknown]

NARRATIVE: CASE EVENT DATE: 201806
